FAERS Safety Report 21583440 (Version 1)
Quarter: 2022Q4

REPORT INFORMATION
  Report Type: Spontaneous
  Country: US (occurrence: US)
  Receive Date: 20221111
  Receipt Date: 20221111
  Transmission Date: 20230112
  Serious: Yes (Hospitalization)
  Sender: FDA-Public Use
  Company Number: US-drreddys-LIT/USA/22/0156969

PATIENT
  Sex: Male

DRUGS (16)
  1. OLANZAPINE [Suspect]
     Active Substance: OLANZAPINE
     Indication: Schizophrenia
  2. OLANZAPINE [Suspect]
     Active Substance: OLANZAPINE
  3. OLANZAPINE [Suspect]
     Active Substance: OLANZAPINE
     Dosage: UNKNOWN TAPERED DOSE
  4. ARIPIPRAZOLE [Suspect]
     Active Substance: ARIPIPRAZOLE
     Indication: Schizophrenia
  5. ARIPIPRAZOLE [Suspect]
     Active Substance: ARIPIPRAZOLE
  6. CARIPRAZINE [Suspect]
     Active Substance: CARIPRAZINE
     Indication: Schizophrenia
  7. CLOZAPINE [Suspect]
     Active Substance: CLOZAPINE
     Indication: Schizophrenia
  8. CLOZAPINE [Suspect]
     Active Substance: CLOZAPINE
     Dosage: OVER THE NEXT 3-4 WEEKS
  9. CLONAZEPAM [Suspect]
     Active Substance: CLONAZEPAM
     Indication: Schizophrenia
  10. CLONAZEPAM [Suspect]
     Active Substance: CLONAZEPAM
     Dates: start: 201906
  11. CLONAZEPAM [Suspect]
     Active Substance: CLONAZEPAM
  12. HALOPERIDOL [Suspect]
     Active Substance: HALOPERIDOL
     Indication: Schizophrenia
  13. HALOPERIDOL DECANOATE [Suspect]
     Active Substance: HALOPERIDOL DECANOATE
     Indication: Schizophrenia
     Dosage: LONG ACTING
  14. LITHIUM [Suspect]
     Active Substance: LITHIUM
     Indication: Schizophrenia
  15. PALIPERIDONE [Suspect]
     Active Substance: PALIPERIDONE
     Indication: Schizophrenia
     Dosage: LONG ACTING
  16. VALPROATE [Suspect]
     Active Substance: VALPROIC ACID
     Indication: Schizophrenia

REACTIONS (1)
  - Treatment failure [Unknown]
